FAERS Safety Report 7558164-7 (Version None)
Quarter: 2011Q2

REPORT INFORMATION
  Report Type: 
  Country: None (occurrence: None)
  Receive Date: 20110620
  Receipt Date: 20110615
  Transmission Date: 20111010
  Serious: Yes (Hospitalization)
  Sender: FDA-Public Use
  Company Number: FR-BRISTOL-MYERS SQUIBB COMPANY-15682925

PATIENT
  Age: 60 Year
  Sex: Female
  Weight: 61 kg

DRUGS (1)
  1. IPILIMUMAB [Suspect]
     Indication: MALIGNANT MELANOMA
     Dosage: BATCH # 0C62102.OM
     Route: 042
     Dates: start: 20110101

REACTIONS (3)
  - PANCYTOPENIA [None]
  - THROMBOCYTOPENIA [None]
  - DIARRHOEA [None]
